FAERS Safety Report 12870553 (Version 1)
Quarter: 2016Q4

REPORT INFORMATION
  Report Type: Spontaneous
  Country: US (occurrence: US)
  Receive Date: 20161021
  Receipt Date: 20161021
  Transmission Date: 20170207
  Serious: Yes (Other)
  Sender: FDA-Public Use
  Company Number: None

PATIENT
  Age: 74 Year
  Sex: Female
  Weight: 88.53 kg

DRUGS (13)
  1. LEVOTHYROXINE. [Concomitant]
     Active Substance: LEVOTHYROXINE
  2. METHADONE [Concomitant]
     Active Substance: METHADONE HYDROCHLORIDE
  3. TRIAMCINOLONE [Concomitant]
     Active Substance: TRIAMCINOLONE
  4. STOOL SOFTENER (DOCUSATE CALCIUM) [Concomitant]
     Active Substance: DOCUSATE CALCIUM
  5. VITAMIN B12 [Concomitant]
     Active Substance: CYANOCOBALAMIN
  6. VITAMIN D [Concomitant]
     Active Substance: CHOLECALCIFEROL
  7. FERROUS SULFATE. [Concomitant]
     Active Substance: FERROUS SULFATE
  8. DOXYCYCLINE. [Suspect]
     Active Substance: DOXYCYCLINE
     Indication: BACTERIAL INFECTION
     Dosage: DOXYCYCLINE 100 MG - CAN TAKE 50MG 2 X^S A DAY - ONLY WITH FOOD
     Route: 048
     Dates: start: 201605, end: 201605
  9. DOXYCYCLINE. [Suspect]
     Active Substance: DOXYCYCLINE
     Indication: FUNGAL INFECTION
     Dosage: DOXYCYCLINE 100 MG - CAN TAKE 50MG 2 X^S A DAY - ONLY WITH FOOD
     Route: 048
     Dates: start: 201605, end: 201605
  10. PREDNISONE. [Concomitant]
     Active Substance: PREDNISONE
  11. OXYBUTYNIN [Concomitant]
     Active Substance: OXYBUTYNIN
  12. HYDROXYCHLORQUINE [Concomitant]
  13. POTASSIUM [Concomitant]
     Active Substance: POTASSIUM

REACTIONS (1)
  - Haematemesis [None]

NARRATIVE: CASE EVENT DATE: 201605
